FAERS Safety Report 5512172-6 (Version None)
Quarter: 2007Q4

REPORT INFORMATION
  Report Type: 
  Country: None (occurrence: None)
  Receive Date: 20071112
  Receipt Date: 20071028
  Transmission Date: 20080405
  Serious: Yes (Hospitalization)
  Sender: FDA-Public Use
  Company Number: PHNU2007DE03477

PATIENT
  Age: 58 Year
  Sex: Male

DRUGS (2)
  1. SEBIVO [Suspect]
     Indication: HEPATITIS B
     Dosage: 600MG EVERY 72 HOURS
     Route: 048
     Dates: start: 20070813, end: 20070919
  2. HEPATITIS B IMMUNE GLOBULIN (HUMAN) [Concomitant]
     Route: 065

REACTIONS (4)
  - ALANINE AMINOTRANSFERASE INCREASED [None]
  - CHOLESTASIS [None]
  - LIVER DISORDER [None]
  - LIVER TRANSPLANT REJECTION [None]
